FAERS Safety Report 8936834 (Version 1)
Quarter: 2012Q4

REPORT INFORMATION
  Report Type: 
  Country: GB (occurrence: US)
  Receive Date: 20121130
  Receipt Date: 20121130
  Transmission Date: 20130627
  Serious: Yes (Hospitalization, Other)
  Sender: FDA-Public Use
  Company Number: GB-MPIJNJ-2012-08468

PATIENT
  Age: 82 Year
  Sex: Male
  Weight: 70 kg

DRUGS (3)
  1. VELCADE [Suspect]
     Indication: MULTIPLE MYELOMA
     Dosage: UNK
  2. PLACEBO [Suspect]
     Indication: MULTIPLE MYELOMA
     Dosage: 1080 mg, q3weeks
     Route: 042
     Dates: start: 20090427
  3. PLACEBO [Suspect]
     Dosage: 1080 mg, q3weeks
     Route: 042
     Dates: start: 20090427

REACTIONS (6)
  - Fall [Recovered/Resolved]
  - Dehydration [Recovered/Resolved]
  - Fatigue [Recovered/Resolved]
  - Asthenia [Recovered/Resolved]
  - Decreased appetite [Recovered/Resolved]
  - Dizziness postural [Recovered/Resolved]
